FAERS Safety Report 9515005 (Version 1)
Quarter: 2013Q1

REPORT INFORMATION
  Report Type: Spontaneous
  Country: US (occurrence: None)
  Receive Date: 20130305
  Receipt Date: 20130305
  Transmission Date: 20140127
  Serious: Yes (Other)
  Sender: FDA-Public Use
  Company Number: 163-21880-12122263

PATIENT
  Age: 63 Year
  Sex: Male
  Weight: 94 kg

DRUGS (19)
  1. REVLIMID [Suspect]
     Indication: PLASMA CELL MYELOMA
     Dosage: 15 MG, 28 IN 28 D, PO
     Route: 048
     Dates: start: 20110111, end: 20120612
  2. VELCADE [Concomitant]
  3. DEXAMETHASONE (DEXAMETHASONE) (UNKNOWN) [Concomitant]
  4. BENDAMUSTINE (BENDAMUSTINE) (UNKNOWN) [Concomitant]
  5. ACETAMINOPHEN-DIPHENHYDRAMINE (DOZOL) (TABLETS) [Concomitant]
  6. ACYCLOVIR (ACICLOVIR) (UNKNOWN) [Concomitant]
  7. ASA (ACETYLSALICYLIC ACID) (UNKNOWN) [Concomitant]
  8. BUPROPION XL (BUPROPION HYDROCHLORIDE) (UNKNOWN) [Concomitant]
  9. CHOLECAL-CIFEROL (COLECALCIFEROL) (UNKNOWN) [Concomitant]
  10. FISH OIL CONCENTRATE (FISH OIL) (UNKNOWN) [Concomitant]
  11. FLUOXETINE (FLUOXETINE) (UNKNOWN) [Concomitant]
  12. GLUCOSAMINE-CHONDROITIN (GLUCOSAMINE W/CHONDROITIN SULFATE) (UNKNOWN)? [Concomitant]
  13. IBUPROFEN (IBUPROFEN) (UNKNOWN) [Concomitant]
  14. LISINOPRIL (LISINOPRIL) (UNKNOWN) [Concomitant]
  15. MULTIVITAMINS (MULTIVITAMINS) (UNKNOWN) [Concomitant]
  16. NAPROXEN SODIUM (NAPROXEN SODIUM) (UNKNOWN) [Concomitant]
  17. ONDANSETRON (ONDANSETRON) (TABLETS) [Concomitant]
  18. PREDNISONE (PREDNISONE) (UNKNOWN) [Concomitant]
  19. ZOLPIDEM (ZOLPIDEM) (UNKNOWN) (ZOLPIDEM) [Concomitant]

REACTIONS (1)
  - Disease progression [None]
